FAERS Safety Report 8946160 (Version 1)
Quarter: 2012Q4

REPORT INFORMATION
  Report Type: 
  Country: US (occurrence: US)
  Receive Date: 20121204
  Receipt Date: 20121204
  Transmission Date: 20130627
  Serious: Yes (Other)
  Sender: FDA-Public Use
  Company Number: US-ELI_LILLY_AND_COMPANY-US201211007861

PATIENT

DRUGS (1)
  1. CYMBALTA [Suspect]
     Dosage: 20 mg, unknown
     Route: 064

REACTIONS (2)
  - Autism [Not Recovered/Not Resolved]
  - Foetal exposure during pregnancy [Recovered/Resolved]
